FAERS Safety Report 19296837 (Version 1)
Quarter: 2021Q2

REPORT INFORMATION
  Report Type: Spontaneous
  Country: GB (occurrence: GB)
  Receive Date: 20210524
  Receipt Date: 20210524
  Transmission Date: 20210717
  Serious: Yes (Hospitalization, Disabling, Other)
  Sender: FDA-Public Use
  Company Number: NVSC2021GB108214

PATIENT
  Age: 59 Year
  Sex: Female
  Weight: 47 kg

DRUGS (1)
  1. CLARITHROMYCIN. [Suspect]
     Active Substance: CLARITHROMYCIN
     Indication: PAIN IN EXTREMITY
     Dosage: UNK
     Route: 065
     Dates: start: 20210206, end: 20210208

REACTIONS (5)
  - Pain in extremity [Not Recovered/Not Resolved]
  - Epistaxis [Unknown]
  - Vomiting [Recovered/Resolved]
  - Arterial rupture [Unknown]
  - Headache [Unknown]

NARRATIVE: CASE EVENT DATE: 20210121
